FAERS Safety Report 6963816 (Version 7)
Quarter: 2013Q2

REPORT INFORMATION
  Report Type: Spontaneous
  Country: US (occurrence: US)
  Receive Date: 20090408
  Receipt Date: 20130610
  Transmission Date: 20140414
  Serious: Yes (Hospitalization, Other)
  Sender: FDA-Public Use
  Company Number: US-ELI_LILLY_AND_COMPANY-US200904000160

PATIENT
  Sex: Female
  Weight: 54.42 kg

DRUGS (5)
  1. HUMALOG LISPRO [Suspect]
     Indication: DIABETES MELLITUS
     Dosage: UNK, UNK
     Route: 058
  2. HUMULIN NPH [Suspect]
     Dosage: UNK, UNK
  3. HUMULIN REGULAR [Suspect]
  4. PERCOCET [Concomitant]
     Indication: MUSCULOSKELETAL PAIN
  5. TYLENOL W/CODEINE NO. 4 [Concomitant]
     Indication: FIBROMYALGIA
     Dosage: UNK, AS NEEDED

REACTIONS (15)
  - Upper limb fracture [Not Recovered/Not Resolved]
  - Retinal detachment [Unknown]
  - Blindness unilateral [Not Recovered/Not Resolved]
  - Eye haemorrhage [Unknown]
  - Blindness [Not Recovered/Not Resolved]
  - Visual impairment [Not Recovered/Not Resolved]
  - Blood glucose decreased [Recovered/Resolved]
  - Hypoglycaemia [Recovered/Resolved]
  - Exposure during pregnancy [Recovered/Resolved]
  - Retinal scar [Unknown]
  - Diabetic retinopathy [Not Recovered/Not Resolved]
  - Fall [Recovered/Resolved]
  - Joint range of motion decreased [Not Recovered/Not Resolved]
  - Musculoskeletal pain [Not Recovered/Not Resolved]
  - Injury [Recovered/Resolved]
